FAERS Safety Report 18343065 (Version 1)
Quarter: 2020Q4

REPORT INFORMATION
  Report Type: Spontaneous
  Country: US (occurrence: US)
  Receive Date: 20201002
  Receipt Date: 20201002
  Transmission Date: 20210113
  Serious: Yes (Hospitalization)
  Sender: FDA-Public Use
  Company Number: None

PATIENT
  Age: 63 Year
  Sex: Male
  Weight: 121 kg

DRUGS (2)
  1. CAPMATINIB [Suspect]
     Active Substance: CAPMATINIB
     Indication: LUNG ADENOCARCINOMA
     Route: 048
     Dates: start: 20200601, end: 20200901
  2. CAPMATINIB [Suspect]
     Active Substance: CAPMATINIB
     Indication: METASTASIS
     Route: 048
     Dates: start: 20200601, end: 20200901

REACTIONS (2)
  - Thrombocytopenia [None]
  - Cerebral haemorrhage [None]

NARRATIVE: CASE EVENT DATE: 20200817
